FAERS Safety Report 21597111 (Version 1)
Quarter: 2022Q4

REPORT INFORMATION
  Report Type: Spontaneous
  Country: US (occurrence: US)
  Receive Date: 20221115
  Receipt Date: 20221115
  Transmission Date: 20230112
  Serious: Yes (Death, Other)
  Sender: FDA-Public Use
  Company Number: US-AMNEAL PHARMACEUTICALS-2022-AMRX-00927

PATIENT
  Age: 17 Year
  Sex: Male
  Weight: 61.224 kg

DRUGS (1)
  1. ISOTRETINOIN [Suspect]
     Active Substance: ISOTRETINOIN
     Indication: Acne
     Dosage: 30 MILLIGRAM, BID
     Route: 048
     Dates: start: 202201

REACTIONS (2)
  - Completed suicide [Fatal]
  - Dermatitis [Unknown]

NARRATIVE: CASE EVENT DATE: 20220217
